FAERS Safety Report 13254708 (Version 1)
Quarter: 2017Q1

REPORT INFORMATION
  Report Type: Report from Study
  Country: US (occurrence: US)
  Receive Date: 20170221
  Receipt Date: 20170221
  Transmission Date: 20170428
  Serious: Yes (Other)
  Sender: FDA-Public Use
  Company Number: US-BRISTOL-MYERS SQUIBB COMPANY-21085584

PATIENT
  Age: 37 Year
  Sex: Male

DRUGS (1)
  1. BELATACEPT [Suspect]
     Active Substance: BELATACEPT
     Indication: PRODUCT USED FOR UNKNOWN INDICATION
     Dosage: 500 MG, UNK
     Route: 065

REACTIONS (5)
  - Polyomavirus-associated nephropathy [Unknown]
  - Renal transplant failure [Unknown]
  - Kidney fibrosis [Unknown]
  - Haemodialysis [Unknown]
  - Transplant rejection [Unknown]

NARRATIVE: CASE EVENT DATE: 20130108
